FAERS Safety Report 9592264 (Version 1)
Quarter: 2013Q4

REPORT INFORMATION
  Report Type: Spontaneous
  Country: US (occurrence: US)
  Receive Date: 20131004
  Receipt Date: 20131004
  Transmission Date: 20140711
  Serious: Yes (Hospitalization, Other)
  Sender: FDA-Public Use
  Company Number: US-BRISTOL-MYERS SQUIBB COMPANY-19430180

PATIENT
  Age: 70 Year
  Sex: Female
  Weight: 113.38 kg

DRUGS (4)
  1. METFORMIN HCL [Suspect]
     Indication: DIABETES MELLITUS
     Dosage: SWITCHED TO METFORMIN EXTENDED RELEASE
     Dates: end: 201209
  2. PRADAXA [Concomitant]
  3. MULTAQ [Concomitant]
  4. METHIMAZOLE [Concomitant]

REACTIONS (5)
  - Cerebrovascular accident [Unknown]
  - Atrial fibrillation [Unknown]
  - Diarrhoea [Unknown]
  - Abdominal discomfort [Unknown]
  - Hyperthyroidism [Unknown]
